FAERS Safety Report 10142992 (Version 1)
Quarter: 2014Q2

REPORT INFORMATION
  Report Type: Spontaneous
  Country: US (occurrence: None)
  Receive Date: 20140429
  Receipt Date: 20140429
  Transmission Date: 20141212
  Serious: No
  Sender: FDA-Public Use
  Company Number: None

PATIENT
  Age: 42 Year
  Sex: Female
  Weight: 53.07 kg

DRUGS (2)
  1. MIRVASO 0.33% GALDERMA [Suspect]
     Indication: ROSACEA
     Dosage: 5 PEA SIZED DROPS ?ONCE DAILY?APPLIED TO A SURFACE, USUALLY THE SKIN
     Route: 061
     Dates: start: 20140404, end: 20140425
  2. MIRVASO 0.33% GALDERMA [Suspect]
     Indication: FLUSHING
     Dosage: 5 PEA SIZED DROPS ?ONCE DAILY?APPLIED TO A SURFACE, USUALLY THE SKIN
     Route: 061
     Dates: start: 20140404, end: 20140425

REACTIONS (4)
  - Flushing [None]
  - Pain [None]
  - Erythema [None]
  - Pyrexia [None]
